FAERS Safety Report 21219088 (Version 1)
Quarter: 2022Q3

REPORT INFORMATION
  Report Type: Report from Study
  Country: PR (occurrence: PR)
  Receive Date: 20220816
  Receipt Date: 20220816
  Transmission Date: 20221027
  Serious: Yes (Other)
  Sender: FDA-Public Use
  Company Number: PR-ABBVIE-22K-131-4502186-00

PATIENT
  Sex: Female
  Weight: 68.100 kg

DRUGS (5)
  1. HUMIRA [Suspect]
     Active Substance: ADALIMUMAB
     Indication: Rheumatoid arthritis
     Route: 058
     Dates: start: 20210803
  2. TOZINAMERAN [Concomitant]
     Active Substance: TOZINAMERAN
     Indication: COVID-19 immunisation
     Dosage: FIRST DOSE
     Route: 030
  3. TOZINAMERAN [Concomitant]
     Active Substance: TOZINAMERAN
     Dosage: SECOND DOSE
     Route: 030
  4. TOZINAMERAN [Concomitant]
     Active Substance: TOZINAMERAN
     Dosage: THIRD DOSE
     Route: 030
  5. TOZINAMERAN [Concomitant]
     Active Substance: TOZINAMERAN
     Dosage: FOURTH DOSE
     Route: 030

REACTIONS (1)
  - Carpal tunnel syndrome [Unknown]
